FAERS Safety Report 14398438 (Version 1)
Quarter: 2018Q1

REPORT INFORMATION
  Report Type: Spontaneous
  Country: US (occurrence: US)
  Receive Date: 20180116
  Receipt Date: 20180116
  Transmission Date: 20180509
  Serious: No
  Sender: FDA-Public Use
  Company Number: US-BIOGEN-2016BI00229881

PATIENT
  Age: 34 Year
  Sex: Female

DRUGS (11)
  1. PLEGRIDY [Suspect]
     Active Substance: PEGINTERFERON BETA-1A
     Route: 065
     Dates: start: 20160321, end: 20160418
  2. AVONEX [Suspect]
     Active Substance: INTERFERON BETA-1A
     Route: 030
     Dates: start: 201604
  3. AVONEX [Suspect]
     Active Substance: INTERFERON BETA-1A
     Route: 065
     Dates: start: 20141201, end: 20160314
  4. AVONEX [Suspect]
     Active Substance: INTERFERON BETA-1A
     Route: 065
     Dates: start: 20160504
  5. PLEGRIDY [Suspect]
     Active Substance: PEGINTERFERON BETA-1A
     Route: 058
     Dates: start: 201405, end: 201405
  6. AVONEX [Suspect]
     Active Substance: INTERFERON BETA-1A
     Route: 030
     Dates: start: 201410
  7. PLEGRIDY [Suspect]
     Active Substance: PEGINTERFERON BETA-1A
     Route: 065
     Dates: start: 20160322, end: 20160415
  8. AVONEX [Suspect]
     Active Substance: INTERFERON BETA-1A
     Route: 065
     Dates: start: 20141109, end: 20160217
  9. PLEGRIDY [Suspect]
     Active Substance: PEGINTERFERON BETA-1A
     Indication: MULTIPLE SCLEROSIS
     Route: 030
     Dates: start: 20160321, end: 20160322
  10. AVONEX [Suspect]
     Active Substance: INTERFERON BETA-1A
     Indication: MULTIPLE SCLEROSIS
     Route: 030
     Dates: start: 20141201, end: 20160314
  11. AVONEX [Suspect]
     Active Substance: INTERFERON BETA-1A
     Route: 065
     Dates: start: 20160427

REACTIONS (15)
  - Pain [Not Recovered/Not Resolved]
  - Lymphadenopathy [Not Recovered/Not Resolved]
  - Arthralgia [Not Recovered/Not Resolved]
  - Headache [Recovered/Resolved]
  - Mobility decreased [Unknown]
  - Kidney infection [Unknown]
  - Hypersensitivity [Recovered/Resolved]
  - Multiple sclerosis relapse [Recovered/Resolved]
  - Lymphadenitis [Not Recovered/Not Resolved]
  - Injection site erythema [Not Recovered/Not Resolved]
  - Fatigue [Recovered/Resolved]
  - Nausea [Recovered/Resolved]
  - Lymph node pain [Recovered/Resolved]
  - Back pain [Not Recovered/Not Resolved]
  - White blood cell count decreased [Not Recovered/Not Resolved]

NARRATIVE: CASE EVENT DATE: 201603
